FAERS Safety Report 23790585 (Version 1)
Quarter: 2024Q2

REPORT INFORMATION
  Report Type: Spontaneous
  Country: ES (occurrence: ES)
  Receive Date: 20240427
  Receipt Date: 20240427
  Transmission Date: 20240716
  Serious: Yes (Hospitalization)
  Sender: FDA-Public Use
  Company Number: None

PATIENT
  Age: 60 Year
  Sex: Female

DRUGS (7)
  1. FUROSEMIDE [Suspect]
     Active Substance: FUROSEMIDE
     Indication: Product used for unknown indication
  2. SULFAMETHOXAZOLE\TRIMETHOPRIM [Concomitant]
     Active Substance: SULFAMETHOXAZOLE\TRIMETHOPRIM
     Indication: Cerebral toxoplasmosis
     Dosage: 1.0 TABLET EVERY 12 HOURS
     Dates: start: 20230926
  3. VENTOLIN [Concomitant]
     Active Substance: ALBUTEROL SULFATE
     Indication: Asthma
     Dosage: 200.0 MCG EVERY 8 HOURS
     Dates: start: 20181205
  4. ANASMA [Concomitant]
     Indication: Asthma
     Dosage: 2.0 PUFF EVERY 12 HOURS
     Dates: start: 20151014
  5. CALCIFEDIOL [Concomitant]
     Active Substance: CALCIFEDIOL
     Indication: Vitamin D decreased
     Dosage: 16000.0 IU EVERY 30 DAYS
     Dates: start: 20231216
  6. FAMOTIDINE [Concomitant]
     Active Substance: FAMOTIDINE
     Indication: Cerebral toxoplasmosis
     Dosage: 20.0 MG AT BREAKFAST
     Dates: start: 20230927
  7. DOLUTEGRAVIR SODIUM\LAMIVUDINE [Concomitant]
     Active Substance: DOLUTEGRAVIR SODIUM\LAMIVUDINE
     Indication: HIV infection
     Dosage: 1.0 TABLET EVERY 24 HOURS
     Dates: start: 20230925

REACTIONS (1)
  - Acute kidney injury [Recovered/Resolved]

NARRATIVE: CASE EVENT DATE: 20230928
